FAERS Safety Report 6515089-3 (Version None)
Quarter: 2009Q4

REPORT INFORMATION
  Report Type: 
  Country: None (occurrence: None)
  Receive Date: 20091223
  Receipt Date: 20091217
  Transmission Date: 20100525
  Serious: Yes (Life-Threatening, Hospitalization)
  Sender: FDA-Public Use
  Company Number: GB-RANBAXY-2006RR-01904

PATIENT
  Age: 40 Year
  Sex: Female

DRUGS (3)
  1. AMITRIPTYLINE [Suspect]
     Indication: POSTPARTUM DEPRESSION
     Dosage: 100 X 50 MG
     Route: 048
  2. FLUOXETINE [Suspect]
     Indication: POSTPARTUM DEPRESSION
     Dosage: 10 X 20 MG
     Route: 048
  3. CLOMIPRAMINE [Suspect]
     Indication: POSTPARTUM DEPRESSION
     Dosage: 13 X 50 MG
     Route: 048

REACTIONS (11)
  - COMA SCALE ABNORMAL [None]
  - CONFUSIONAL STATE [None]
  - ELECTROCARDIOGRAM QRS COMPLEX PROLONGED [None]
  - GRAND MAL CONVULSION [None]
  - INTENTIONAL OVERDOSE [None]
  - METABOLIC ACIDOSIS [None]
  - MYDRIASIS [None]
  - SINUS TACHYCARDIA [None]
  - SOMNOLENCE [None]
  - THERAPEUTIC AGENT TOXICITY [None]
  - VENTRICULAR TACHYCARDIA [None]
